FAERS Safety Report 9483540 (Version 1)
Quarter: 2013Q3

REPORT INFORMATION
  Report Type: Spontaneous
  Country: CA (occurrence: CA)
  Receive Date: 20130828
  Receipt Date: 20130828
  Transmission Date: 20140515
  Serious: Yes (Hospitalization)
  Sender: FDA-Public Use
  Company Number: CA-AMGEN-KDL278170

PATIENT
  Age: 76 Year
  Sex: Female

DRUGS (2)
  1. ENBREL [Suspect]
     Indication: RHEUMATOID ARTHRITIS
     Dosage: UNK UNK, QWK
     Route: 058
     Dates: start: 20030311, end: 20080108
  2. PREDNISONE [Concomitant]

REACTIONS (3)
  - Clostridium difficile infection [Unknown]
  - Loss of consciousness [Unknown]
  - Staphylococcal infection [Unknown]
